FAERS Safety Report 7574437-6 (Version None)
Quarter: 2011Q2

REPORT INFORMATION
  Report Type: 
  Country: None (occurrence: None)
  Receive Date: 20110627
  Receipt Date: 20110607
  Transmission Date: 20111010
  Serious: Yes (Hospitalization, Other)
  Sender: FDA-Public Use
  Company Number: US-BAYER-2011-050435

PATIENT
  Age: 21 Year
  Sex: Male
  Weight: 73 kg

DRUGS (1)
  1. PHILLIPS' MILK OF MAGNESIA LIQUID MINT [Suspect]
     Indication: CONSTIPATION
     Dosage: UNK, TOTAL VOLUME 12OZ
     Route: 048
     Dates: start: 20110601, end: 20110601

REACTIONS (6)
  - ABDOMINAL PAIN UPPER [None]
  - ASTHENIA [None]
  - EATING DISORDER [None]
  - HAEMATOCHEZIA [None]
  - NAUSEA [None]
  - GASTROINTESTINAL TRACT IRRITATION [None]
